FAERS Safety Report 22807097 (Version 3)
Quarter: 2023Q4

REPORT INFORMATION
  Report Type: Report from Study
  Country: FR (occurrence: FR)
  Receive Date: 20230810
  Receipt Date: 20231213
  Transmission Date: 20240110
  Serious: Yes (Hospitalization)
  Sender: FDA-Public Use
  Company Number: FR-SERVIER-S23009109

PATIENT

DRUGS (11)
  1. PEGASPARGASE [Suspect]
     Active Substance: PEGASPARGASE
     Indication: Acute lymphocytic leukaemia
     Dosage: 1325 IU, D4
     Route: 042
     Dates: start: 20220131, end: 20220131
  2. VINCRISTINE [Suspect]
     Active Substance: VINCRISTINE
     Indication: Acute lymphocytic leukaemia
     Dosage: 0.8 MG, D1 OF EACH CYCLE
     Route: 042
     Dates: start: 20220331
  3. DEXAMETHASONE [Suspect]
     Active Substance: DEXAMETHASONE
     Indication: Acute lymphocytic leukaemia
     Dosage: 3.5 MG, D1 TO D5 OF EACH CYCLE
     Route: 048
     Dates: start: 20220331
  4. METHOTREXATE [Suspect]
     Active Substance: METHOTREXATE
     Indication: Acute lymphocytic leukaemia
     Dosage: 12.5 MG, ONCE A WEEK
     Route: 048
     Dates: start: 20220331, end: 20220929
  5. METHOTREXATE [Suspect]
     Active Substance: METHOTREXATE
     Dosage: 15.5 MG, ONCE A WEEK
     Route: 048
     Dates: start: 20220915
  6. METHOTREXATE [Suspect]
     Active Substance: METHOTREXATE
     Dosage: 10 MG, D15, C1 AND C2
     Route: 037
     Dates: start: 20220414, end: 20220609
  7. METHOTREXATE [Suspect]
     Active Substance: METHOTREXATE
     Dosage: 12 MG, D15 OF EACH CYCLE
     Route: 037
     Dates: start: 20220804
  8. MERCAPTOPURINE [Suspect]
     Active Substance: MERCAPTOPURINE
     Indication: Acute lymphocytic leukaemia
     Dosage: 28 MG, QD
     Route: 048
     Dates: start: 20220331, end: 20220609
  9. MERCAPTOPURINE [Suspect]
     Active Substance: MERCAPTOPURINE
     Dosage: 20 MG, QD
     Route: 048
     Dates: start: 20220616, end: 20220929
  10. MERCAPTOPURINE [Suspect]
     Active Substance: MERCAPTOPURINE
     Dosage: 26 MG, QD
     Route: 048
     Dates: start: 20220929
  11. BACTRIM [Concomitant]
     Active Substance: SULFAMETHOXAZOLE\TRIMETHOPRIM
     Indication: Antifungal prophylaxis
     Dosage: 300 MG, 3 TIMES A WEEK
     Route: 048

REACTIONS (3)
  - Febrile bone marrow aplasia [Recovered/Resolved]
  - COVID-19 [Recovered/Resolved]
  - Respiratory syncytial virus infection [Recovered/Resolved]

NARRATIVE: CASE EVENT DATE: 20221226
